FAERS Safety Report 5252934-6 (Version None)
Quarter: 2007Q1

REPORT INFORMATION
  Report Type: 
  Country: None (occurrence: None)
  Receive Date: 20070301
  Receipt Date: 20070223
  Transmission Date: 20070707
  Serious: Yes (Other)
  Sender: FDA-Public Use
  Company Number: JP-AVENTIS-200711319GDDC

PATIENT
  Age: 77 Year
  Sex: Female

DRUGS (8)
  1. RIFADIN [Suspect]
     Route: 048
     Dates: start: 20030101, end: 20040101
  2. RIFADIN [Suspect]
     Indication: CUTANEOUS TUBERCULOSIS
     Route: 048
     Dates: start: 20030101, end: 20040101
  3. ISONIAZID [Suspect]
     Route: 048
     Dates: start: 20030101, end: 20040101
  4. ISONIAZID [Suspect]
     Indication: CUTANEOUS TUBERCULOSIS
     Route: 048
     Dates: start: 20030101, end: 20040101
  5. ETHAMBUTOL HYDROCHLORIDE [Suspect]
     Route: 048
     Dates: start: 20030101
  6. ETHAMBUTOL HYDROCHLORIDE [Suspect]
     Dosage: DOSE: UNK
     Route: 048
     Dates: end: 20040101
  7. ETHAMBUTOL HYDROCHLORIDE [Suspect]
     Indication: CUTANEOUS TUBERCULOSIS
     Route: 048
     Dates: start: 20030101
  8. ETHAMBUTOL HYDROCHLORIDE [Suspect]
     Dosage: DOSE: UNK
     Route: 048
     Dates: end: 20040101

REACTIONS (1)
  - RENAL FAILURE CHRONIC [None]
